FAERS Safety Report 19145011 (Version 1)
Quarter: 2021Q2

REPORT INFORMATION
  Report Type: Spontaneous
  Country: IE (occurrence: IE)
  Receive Date: 20210416
  Receipt Date: 20210416
  Transmission Date: 20210717
  Serious: Yes (Life-Threatening, Hospitalization)
  Sender: FDA-Public Use
  Company Number: IE-TEVA-2021-IE-1902202

PATIENT
  Age: 31 Year
  Sex: Female

DRUGS (13)
  1. DOXYCYCLINE. [Suspect]
     Active Substance: DOXYCYCLINE
     Indication: ANTIBIOTIC THERAPY
  2. LORAZEPAM. [Suspect]
     Active Substance: LORAZEPAM
     Dosage: AS NEEDED
     Route: 065
     Dates: start: 201910
  3. SERTRALINE [Concomitant]
     Active Substance: SERTRALINE HYDROCHLORIDE
     Indication: ANXIETY
     Route: 065
     Dates: start: 201603
  4. MIRTAZAPINE. [Concomitant]
     Active Substance: MIRTAZAPINE
     Indication: ANXIETY
     Dosage: NOCTE (EVERY NIGHT)
     Route: 065
     Dates: start: 201909
  5. QUETIAPINE. [Suspect]
     Active Substance: QUETIAPINE
     Indication: BIPOLAR DISORDER
     Dosage: 50 MG TOMORROW MORNING (MANE) AND 75 MG EVERY NIGHT (NOCTE)
     Route: 065
     Dates: start: 201911
  6. QUETIAPINE. [Suspect]
     Active Substance: QUETIAPINE
     Dosage: 25 MG TOMORROW MORNING (MANE) AND 75 MG EVERY NIGHT (NOCTE)
     Route: 065
     Dates: start: 202001
  7. DOXYCYCLINE. [Suspect]
     Active Substance: DOXYCYCLINE
     Indication: BRONCHITIS
     Route: 065
     Dates: start: 201912
  8. MIRTAZAPINE. [Concomitant]
     Active Substance: MIRTAZAPINE
     Indication: ANXIETY
     Dosage: NOCTE (EVERY NIGHT)
     Route: 065
     Dates: start: 201910
  9. OLANZAPINE. [Suspect]
     Active Substance: OLANZAPINE
     Indication: BIPOLAR DISORDER
     Dosage: 5 MG ONCE DAILY AND 5 MG TWICE DAILY AS NEEDED
     Route: 065
     Dates: start: 201912
  10. SERTRALINE [Concomitant]
     Active Substance: SERTRALINE HYDROCHLORIDE
     Indication: ANXIETY
     Route: 065
     Dates: start: 201804, end: 201911
  11. OLANZAPINE. [Suspect]
     Active Substance: OLANZAPINE
     Route: 065
     Dates: start: 202001
  12. LORAZEPAM. [Suspect]
     Active Substance: LORAZEPAM
     Indication: ANXIETY
     Dosage: AS NEEDED
     Route: 065
     Dates: start: 201908
  13. MIRTAZAPINE. [Concomitant]
     Active Substance: MIRTAZAPINE
     Indication: ANXIETY
     Dosage: NOCTE (EVERY NIGHT)
     Route: 065
     Dates: start: 201912

REACTIONS (3)
  - Mobility decreased [Recovering/Resolving]
  - General physical health deterioration [Recovering/Resolving]
  - Neuroleptic malignant syndrome [Recovering/Resolving]

NARRATIVE: CASE EVENT DATE: 2019
